FAERS Safety Report 8238809-9 (Version None)
Quarter: 2012Q1

REPORT INFORMATION
  Report Type: 
  Country: None (occurrence: None)
  Receive Date: 20120326
  Receipt Date: 20120307
  Transmission Date: 20120608
  Serious: Yes (Death)
  Sender: FDA-Public Use
  Company Number: 2012030034

PATIENT
  Age: 49 Year
  Sex: Male
  Weight: 119.296 kg

DRUGS (4)
  1. ALCOHOL (ETHANOL) [Suspect]
  2. OXYCODONE HCL [Suspect]
  3. SOMA [Suspect]
  4. TEMAZEPAM [Suspect]

REACTIONS (13)
  - ROAD TRAFFIC ACCIDENT [None]
  - HEAD INJURY [None]
  - SPINAL FRACTURE [None]
  - RIB FRACTURE [None]
  - SKULL FRACTURE [None]
  - STERNAL FRACTURE [None]
  - CHEST INJURY [None]
  - CONTUSION [None]
  - SUBDURAL HAEMORRHAGE [None]
  - RED BLOOD CELLS CSF POSITIVE [None]
  - BRAIN CONTUSION [None]
  - NECK INJURY [None]
  - EXCORIATION [None]
